FAERS Safety Report 11615530 (Version 1)
Quarter: 2015Q4

REPORT INFORMATION
  Report Type: Report from Study
  Country: US (occurrence: US)
  Receive Date: 20151009
  Receipt Date: 20151009
  Transmission Date: 20160304
  Serious: Yes (Hospitalization, Other)
  Sender: FDA-Public Use
  Company Number: US-BIOGENIDEC-2015BI134491

PATIENT
  Age: 53 Year
  Sex: Male

DRUGS (1)
  1. AVONEX [Suspect]
     Active Substance: INTERFERON BETA-1A
     Indication: MULTIPLE SCLEROSIS
     Route: 030

REACTIONS (11)
  - Limb crushing injury [Recovered/Resolved with Sequelae]
  - Feeling abnormal [Recovered/Resolved]
  - Bladder dysfunction [Recovered/Resolved]
  - Concussion [Recovered/Resolved with Sequelae]
  - Spinal fracture [Recovered/Resolved]
  - Fall [Recovered/Resolved]
  - Traumatic intracranial haemorrhage [Not Recovered/Not Resolved]
  - Amnesia [Not Recovered/Not Resolved]
  - Wound haemorrhage [Recovered/Resolved]
  - Laceration [Recovered/Resolved with Sequelae]
  - Musculoskeletal disorder [Recovered/Resolved with Sequelae]

NARRATIVE: CASE EVENT DATE: 2013
